FAERS Safety Report 4798939-0 (Version None)
Quarter: 2005Q4

REPORT INFORMATION
  Report Type: 
  Country: None (occurrence: None)
  Receive Date: 20051014
  Receipt Date: 20050818
  Transmission Date: 20060501
  Serious: Yes (Disabling)
  Sender: FDA-Public Use
  Company Number: GBWYE917818AUG05

PATIENT
  Sex: Female
  Weight: 31 kg

DRUGS (7)
  1. ENBREL [Suspect]
     Indication: JUVENILE ARTHRITIS
     Route: 058
     Dates: start: 20030311, end: 20050801
  2. METHOTREXATE [Concomitant]
     Indication: JUVENILE ARTHRITIS
     Route: 048
     Dates: start: 20010801
  3. UNSPECIFIED NON-STEROIDAL ANTI-INFLAMMATORY AGENT [Concomitant]
     Dosage: UNKNOWN
  4. FOLIC ACID [Concomitant]
     Indication: JUVENILE ARTHRITIS
     Route: 048
  5. SOMATROPIN [Concomitant]
     Indication: BODY HEIGHT BELOW NORMAL
     Route: 058
  6. LEVOTHYROXINE SODIUM [Concomitant]
     Indication: HYPOTHYROIDISM
     Route: 048
     Dates: start: 20050301
  7. OFLOXACIN [Concomitant]
     Indication: UVEITIS
     Dosage: UNSPECIFIED DOSE AS RQUIRED
     Dates: start: 20020501

REACTIONS (5)
  - CONDITION AGGRAVATED [None]
  - INFECTION [None]
  - PSORIASIS [None]
  - SKIN LESION [None]
  - UVEITIS [None]
